FAERS Safety Report 15265745 (Version 1)
Quarter: 2018Q3

REPORT INFORMATION
  Report Type: Spontaneous
  Country: US (occurrence: US)
  Receive Date: 20180810
  Receipt Date: 20180810
  Transmission Date: 20181010
  Serious: No
  Sender: FDA-Public Use
  Company Number: US-SA-2018SA219126

PATIENT
  Sex: Female

DRUGS (9)
  1. ACTEMRA [Concomitant]
     Active Substance: TOCILIZUMAB
  2. CIMZIA [Concomitant]
     Active Substance: CERTOLIZUMAB PEGOL
  3. ARAVA [Suspect]
     Active Substance: LEFLUNOMIDE
     Indication: RHEUMATOID ARTHRITIS
     Dosage: UNK UNK, UNK
     Route: 065
  4. METHOTREXATE. [Concomitant]
     Active Substance: METHOTREXATE
  5. SULFASALAZINE. [Concomitant]
     Active Substance: SULFASALAZINE
  6. MOBIC [Concomitant]
     Active Substance: MELOXICAM
  7. HUMIRA [Concomitant]
     Active Substance: ADALIMUMAB
  8. ENBREL [Concomitant]
     Active Substance: ETANERCEPT
  9. KEVZARA [Concomitant]
     Active Substance: SARILUMAB

REACTIONS (1)
  - Hypersensitivity [Unknown]
